FAERS Safety Report 4589867-4 (Version None)
Quarter: 2005Q1

REPORT INFORMATION
  Report Type: 
  Country: None (occurrence: None)
  Receive Date: 20050223
  Receipt Date: 20031121
  Transmission Date: 20050727
  Serious: Yes (Hospitalization, Disabling)
  Sender: FDA-Public Use
  Company Number: US-MERCK-0311USA02528

PATIENT
  Age: 61 Year
  Sex: Male
  Weight: 95 kg

DRUGS (8)
  1. VIOXX [Suspect]
     Indication: ARTHRALGIA
     Route: 048
     Dates: start: 20020930, end: 20030201
  2. VIOXX [Suspect]
     Indication: ARTHRITIS
     Route: 048
     Dates: start: 20020930, end: 20030201
  3. PROSTATA [Concomitant]
     Route: 065
  4. HERBS (UNSPECIFIED) [Concomitant]
     Route: 065
  5. PROTONIX [Concomitant]
     Indication: GASTROOESOPHAGEAL REFLUX DISEASE
     Route: 065
  6. MOTRIN [Concomitant]
     Route: 065
  7. ADVIL [Concomitant]
     Route: 065
  8. MYLANTA + MYLANTA DS [Concomitant]
     Route: 065

REACTIONS (15)
  - ACUTE MYOCARDIAL INFARCTION [None]
  - ANXIETY [None]
  - AORTIC VALVE INCOMPETENCE [None]
  - ASPARTATE AMINOTRANSFERASE INCREASED [None]
  - BLOOD TRIGLYCERIDES INCREASED [None]
  - CEREBROVASCULAR ACCIDENT [None]
  - CORONARY ARTERY DISEASE [None]
  - DEPRESSION [None]
  - EMOTIONAL DISTRESS [None]
  - FATIGUE [None]
  - FEAR [None]
  - INJURY [None]
  - MITRAL VALVE INCOMPETENCE [None]
  - OEDEMA PERIPHERAL [None]
  - THROMBOSIS [None]
